FAERS Safety Report 12426075 (Version 1)
Quarter: 2016Q2

REPORT INFORMATION
  Report Type: Spontaneous
  Country: AU (occurrence: AU)
  Receive Date: 20160601
  Receipt Date: 20160601
  Transmission Date: 20160815
  Serious: Yes (Other)
  Sender: FDA-Public Use
  Company Number: AU-HQ SPECIALTY-AU-2016INT000318

PATIENT
  Age: 71 Year
  Sex: Female

DRUGS (3)
  1. METHOTREXATE SODIUM. [Suspect]
     Active Substance: METHOTREXATE SODIUM
     Indication: POLYMYOSITIS
     Dosage: 1.4286 MG (10 MG, 1 IN 1 W)
  2. AZATHIOPRINE. [Suspect]
     Active Substance: AZATHIOPRINE
     Indication: PYODERMA GANGRENOSUM
     Dosage: 1 MG/KG, UNK
  3. PREDNISONE. [Suspect]
     Active Substance: PREDNISONE
     Indication: PYODERMA GANGRENOSUM
     Dosage: 50 MG, 1 D

REACTIONS (3)
  - Herpes simplex [Unknown]
  - Condition aggravated [Recovering/Resolving]
  - Genital herpes simplex [Recovering/Resolving]
